FAERS Safety Report 4360539-4 (Version None)
Quarter: 2004Q2

REPORT INFORMATION
  Report Type: 
  Country: None (occurrence: None)
  Receive Date: 20040519
  Receipt Date: 20040507
  Transmission Date: 20050107
  Serious: Yes (Other)
  Sender: FDA-Public Use
  Company Number: GB-GLAXOSMITHKLINE-B0332244A

PATIENT
  Age: 22 Year
  Sex: Female

DRUGS (3)
  1. QVAR 40 [Suspect]
     Indication: ASTHMA
     Dosage: 50MCG TWICE PER DAY
     Route: 055
     Dates: start: 20040304, end: 20040420
  2. ALBUTEROL SULFATE [Concomitant]
     Indication: ASTHMA
     Route: 055
     Dates: start: 20001106
  3. MICROGYNON [Concomitant]
     Indication: CONTRACEPTION
     Dosage: 30MCG PER DAY
     Route: 048
     Dates: start: 20000525

REACTIONS (1)
  - ASTHMA [None]
